FAERS Safety Report 12637678 (Version 1)
Quarter: 2016Q3

REPORT INFORMATION
  Report Type: Spontaneous
  Country: US (occurrence: US)
  Receive Date: 20160809
  Receipt Date: 20160809
  Transmission Date: 20161109
  Serious: Yes (Other)
  Sender: FDA-Public Use
  Company Number: US-ABBVIE-15P-163-1446762-00

PATIENT
  Age: 50 Year
  Sex: Female
  Weight: 72 kg

DRUGS (13)
  1. GEODON [Suspect]
     Active Substance: ZIPRASIDONE HYDROCHLORIDE\ZIPRASIDONE MESYLATE
     Indication: BIPOLAR DISORDER
     Dosage: ONE IN THE AM AND ONE AT BEDTIME
     Route: 065
     Dates: start: 2010
  2. ZOLOFT [Suspect]
     Active Substance: SERTRALINE HYDROCHLORIDE
     Indication: DEPRESSION
     Route: 065
  3. XANAX [Concomitant]
     Active Substance: ALPRAZOLAM
     Indication: ANXIETY
     Dosage: EXTENDED RELEASE
  4. LAMICTAL [Concomitant]
     Active Substance: LAMOTRIGINE
     Indication: AFFECTIVE DISORDER
     Dosage: TAKEN AT LEAST 4 YEARS AT BEDTIME
  5. DEPAKOTE [Suspect]
     Active Substance: DIVALPROEX SODIUM
     Indication: PRODUCT USED FOR UNKNOWN INDICATION
     Route: 065
     Dates: start: 200702
  6. PROPRANOLOL [Concomitant]
     Active Substance: PROPRANOLOL\PROPRANOLOL HYDROCHLORIDE
     Indication: CARDIAC DISORDER
     Dates: start: 2007
  7. SYNTHROID [Concomitant]
     Active Substance: LEVOTHYROXINE SODIUM
     Indication: HYPERTHYROIDISM
     Dosage: 1 ON EMPTY STOMACH
     Dates: start: 2007
  8. TRIHEXYPHENIDYL [Concomitant]
     Active Substance: TRIHEXYPHENIDYL
     Indication: DYSKINESIA
     Dates: start: 2007
  9. PRAZOSIN [Suspect]
     Active Substance: PRAZOSIN
     Indication: SLEEP DISORDER
     Dosage: 2 OR 3 AT BEDTIME
     Route: 065
     Dates: start: 2014
  10. TEGRETOL [Concomitant]
     Active Substance: CARBAMAZEPINE
     Indication: AFFECTIVE DISORDER
     Dosage: TAKEN AT LEAST 3 YEARS
  11. TRIHEXYPHENIDYL [Concomitant]
     Active Substance: TRIHEXYPHENIDYL
     Indication: DYSTONIA
  12. SEROQUEL [Suspect]
     Active Substance: QUETIAPINE FUMARATE
     Indication: PRODUCT USED FOR UNKNOWN INDICATION
     Route: 065
     Dates: start: 200702
  13. PRISTIQ EXTENDED-RELEASE [Suspect]
     Active Substance: DESVENLAFAXINE SUCCINATE
     Indication: DEPRESSION
     Dosage: EXTENDED RELEASE: 2  50MG PILLS/DAY
     Route: 065

REACTIONS (7)
  - Drug dependence [Recovered/Resolved]
  - Suicidal ideation [Unknown]
  - Dystonia [Not Recovered/Not Resolved]
  - Withdrawal syndrome [Recovered/Resolved]
  - Gait disturbance [Unknown]
  - Dyskinesia [Not Recovered/Not Resolved]
  - Head discomfort [Recovered/Resolved]

NARRATIVE: CASE EVENT DATE: 2014
